FAERS Safety Report 14822073 (Version 1)
Quarter: 2018Q2

REPORT INFORMATION
  Report Type: Spontaneous
  Country: US (occurrence: US)
  Receive Date: 20180417
  Receipt Date: 20180417
  Transmission Date: 20180711
  Serious: Yes (Hospitalization)
  Sender: FDA-Public Use
  Company Number: None

PATIENT
  Age: 71 Year
  Sex: Female

DRUGS (1)
  1. AFINITOR [Suspect]
     Active Substance: EVEROLIMUS
     Indication: BREAST CANCER
     Route: 048
     Dates: start: 20180115

REACTIONS (5)
  - Asthenia [None]
  - Confusional state [None]
  - Gastrointestinal haemorrhage [None]
  - Hypotension [None]
  - Dyspnoea [None]

NARRATIVE: CASE EVENT DATE: 20180318
